FAERS Safety Report 8521961-5 (Version None)
Quarter: 2012Q3

REPORT INFORMATION
  Report Type: 
  Country: None (occurrence: None)
  Receive Date: 20120719
  Receipt Date: 20120620
  Transmission Date: 20120928
  Serious: Yes (Other)
  Sender: FDA-Public Use
  Company Number: US-BRISTOL-MYERS SQUIBB COMPANY-16702839

PATIENT
  Age: 4 Decade
  Sex: Male

DRUGS (1)
  1. YERVOY [Suspect]
     Indication: MALIGNANT MELANOMA
     Dosage: 2ND DOSE ON JUN2012
     Route: 042
     Dates: start: 20120501

REACTIONS (3)
  - NEUROPATHY PERIPHERAL [None]
  - ENDOCRINE DISORDER [None]
  - FALL [None]
